FAERS Safety Report 4375569-6 (Version None)
Quarter: 2004Q2

REPORT INFORMATION
  Report Type: 
  Country: None (occurrence: None)
  Receive Date: 20040607
  Receipt Date: 20040524
  Transmission Date: 20050107
  Serious: Yes (Other)
  Sender: FDA-Public Use
  Company Number: HQWYE132827MAY04

PATIENT
  Sex: Female

DRUGS (6)
  1. PREMPRO [Suspect]
     Indication: HORMONE REPLACEMENT THERAPY
  2. CYCRIN [Suspect]
     Indication: HORMONE REPLACEMENT THERAPY
  3. ESTRACE [Suspect]
     Indication: OESTROGEN REPLACEMENT THERAPY
  4. ESTROGENS (CONJUGATED ESTROGENS) [Suspect]
     Indication: OESTROGEN REPLACEMENT THERAPY
  5. PREMARIN [Suspect]
     Indication: OESTROGEN REPLACEMENT THERAPY
  6. PROVERA [Suspect]
     Indication: HORMONE REPLACEMENT THERAPY

REACTIONS (1)
  - BREAST CANCER [None]
